FAERS Safety Report 18841514 (Version 2)
Quarter: 2021Q1

REPORT INFORMATION
  Report Type: Report from Study
  Country: US (occurrence: US)
  Receive Date: 20210204
  Receipt Date: 20210212
  Transmission Date: 20210419
  Serious: Yes (Other)
  Sender: FDA-Public Use
  Company Number: US-GILEAD-2021-0515428

PATIENT
  Age: 25 Year
  Sex: Female

DRUGS (20)
  1. ADDERALL [Concomitant]
     Active Substance: AMPHETAMINE ASPARTATE\AMPHETAMINE SULFATE\DEXTROAMPHETAMINE SACCHARATE\DEXTROAMPHETAMINE SULFATE
  2. CODEINE [Concomitant]
     Active Substance: CODEINE
  3. BACTRIM [Concomitant]
     Active Substance: SULFAMETHOXAZOLE\TRIMETHOPRIM
  4. LILETTA [Concomitant]
     Active Substance: LEVONORGESTREL
  5. OMEPRAZOLE. [Concomitant]
     Active Substance: OMEPRAZOLE
  6. PLAQUENIL [Concomitant]
     Active Substance: HYDROXYCHLOROQUINE SULFATE
  7. PREDNISONE. [Concomitant]
     Active Substance: PREDNISONE
  8. SILDENAFIL. [Concomitant]
     Active Substance: SILDENAFIL
  9. PRENATAL [FOLIC ACID;IRON] [Concomitant]
     Active Substance: FOLIC ACID\IRON\MINERALS\VITAMINS
  10. AMBRISENTAN [Suspect]
     Active Substance: AMBRISENTAN
     Indication: PULMONARY ARTERIAL HYPERTENSION
     Dosage: 10 MG, QD
     Route: 065
     Dates: start: 20150314
  11. ACETAMIN [Concomitant]
     Active Substance: ACETAMINOPHEN
  12. BACTROBAN [Concomitant]
     Active Substance: MUPIROCIN\MUPIROCIN CALCIUM
  13. LEXAPRO [Concomitant]
     Active Substance: ESCITALOPRAM OXALATE
  14. LOSARTAN. [Concomitant]
     Active Substance: LOSARTAN
  15. ASPIRIN (E.C.) [Concomitant]
     Active Substance: ASPIRIN
  16. PRILOSEC [Concomitant]
     Active Substance: OMEPRAZOLE MAGNESIUM
  17. MYFORTIC [Concomitant]
     Active Substance: MYCOPHENOLATE SODIUM
  18. ZANTAC [Concomitant]
     Active Substance: RANITIDINE HYDROCHLORIDE
  19. ATIVAN [Concomitant]
     Active Substance: LORAZEPAM
  20. DICLOFEN [Concomitant]
     Active Substance: DICLOFENAC SODIUM

REACTIONS (2)
  - Exposure during pregnancy [Unknown]
  - Intentional dose omission [Not Recovered/Not Resolved]
